FAERS Safety Report 7305150-8 (Version None)
Quarter: 2011Q1

REPORT INFORMATION
  Report Type: 
  Country: None (occurrence: None)
  Receive Date: 20110222
  Receipt Date: 20110126
  Transmission Date: 20110831
  Serious: No
  Sender: FDA-Public Use
  Company Number: US-B.I. PHARMACEUTICALS,INC./RIDGEFIELD-2011-BP-02547BP

PATIENT
  Sex: Female

DRUGS (4)
  1. AVALIDE [Concomitant]
     Indication: HYPERTENSION
  2. MULTAQ [Concomitant]
     Indication: ATRIAL FIBRILLATION
  3. PRADAXA [Suspect]
     Indication: ATRIAL FIBRILLATION
     Dosage: 300 MG
     Route: 048
     Dates: start: 20110113
  4. TOPROL-XL [Concomitant]
     Indication: HYPERTENSION

REACTIONS (3)
  - EARLY SATIETY [None]
  - ABDOMINAL DISTENSION [None]
  - MUSCULOSKELETAL CHEST PAIN [None]
